FAERS Safety Report 8761399 (Version 1)
Quarter: 2012Q4

REPORT INFORMATION
  Report Type: 
  Country: DE (occurrence: DE)
  Receive Date: 20120829
  Receipt Date: 20120829
  Transmission Date: 20130627
  Serious: Yes (Hospitalization)
  Sender: FDA-Public Use
  Company Number: DE-PFIZER INC-2012207345

PATIENT
  Age: 48 Year
  Sex: Female
  Weight: 124.6 kg

DRUGS (5)
  1. GENOTROPIN [Suspect]
     Dosage: 0.2 mg, 1x/day 7/wk
     Route: 058
     Dates: start: 20070830
  2. AMILORID NM PHARMA [Concomitant]
     Indication: ESSENTIAL HYPERTENSION
     Dosage: UNK
     Dates: start: 20060620
  3. VIGANTOLETTEN ^BAYER^ [Concomitant]
     Indication: VITAMIN D DEFICIENCY
     Dosage: UNK
     Dates: start: 20060620
  4. VOTUM [Concomitant]
     Indication: ESSENTIAL HYPERTENSION
     Dosage: UNK
     Dates: start: 20060620
  5. ZINC [Concomitant]
     Indication: ZINC DEFICIENCY
     Dosage: UNK
     Dates: start: 20060620

REACTIONS (2)
  - Burnout syndrome [Unknown]
  - Depression [Unknown]
